FAERS Safety Report 7631424-7 (Version None)
Quarter: 2011Q3

REPORT INFORMATION
  Report Type: 
  Country: None (occurrence: None)
  Receive Date: 20110725
  Receipt Date: 20110712
  Transmission Date: 20111222
  Serious: Yes (Other)
  Sender: FDA-Public Use
  Company Number: FR-ELI_LILLY_AND_COMPANY-FR201107002920

PATIENT
  Sex: Female

DRUGS (8)
  1. NOVO RAPID [Concomitant]
  2. AMITRIPTYLINE HCL [Concomitant]
     Dosage: UNK
  3. CYMBALTA [Suspect]
     Dosage: 30 MG, UNKNOWN
     Route: 048
     Dates: start: 20110404, end: 20110414
  4. VITAMIN B1 TAB [Concomitant]
     Dosage: UNK
  5. LEVEMIR [Concomitant]
  6. VITAMIN B6 [Concomitant]
     Dosage: UNK
  7. CITALOPRAM HYDROBROMIDE [Concomitant]
  8. TEMAZEPAM [Concomitant]

REACTIONS (4)
  - AGGRESSION [None]
  - SUICIDAL IDEATION [None]
  - BURNING SENSATION [None]
  - DEPRESSION [None]
